FAERS Safety Report 8621357-1 (Version None)
Quarter: 2012Q3

REPORT INFORMATION
  Report Type: 
  Country: None (occurrence: None)
  Receive Date: 20120824
  Receipt Date: 20120820
  Transmission Date: 20120928
  Serious: Yes (Other)
  Sender: FDA-Public Use
  Company Number: CA-ROCHE-1104677

PATIENT
  Age: 50 Year
  Sex: Female

DRUGS (2)
  1. XELODA [Suspect]
     Indication: PRODUCT USED FOR UNKNOWN INDICATION
     Route: 065
  2. TYKERB [Suspect]
     Indication: PRODUCT USED FOR UNKNOWN INDICATION
     Route: 048

REACTIONS (10)
  - METASTASES TO CENTRAL NERVOUS SYSTEM [None]
  - DRY SKIN [None]
  - OCULAR HYPERAEMIA [None]
  - SKIN EXFOLIATION [None]
  - BREAST CANCER [None]
  - LACRIMATION INCREASED [None]
  - EYE SWELLING [None]
  - NEOPLASM MALIGNANT [None]
  - PARAESTHESIA [None]
  - FATIGUE [None]
